FAERS Safety Report 19358586 (Version 1)
Quarter: 2021Q2

REPORT INFORMATION
  Report Type: Spontaneous
  Country: US (occurrence: US)
  Receive Date: 20210601
  Receipt Date: 20210601
  Transmission Date: 20210717
  Serious: Yes (Hospitalization)
  Sender: FDA-Public Use
  Company Number: US-APOTEX-2021AP012906

PATIENT
  Age: 3 Year
  Sex: Female
  Weight: 15.1 kg

DRUGS (11)
  1. LEVALBUTEROL [LEVOSALBUTAMOL] [Suspect]
     Active Substance: LEVALBUTEROL
     Dosage: 2 DOSAGE FORM, 0.63 MG EACH
  2. IPRATROPIUM [Concomitant]
     Active Substance: IPRATROPIUM
     Indication: DYSPNOEA
     Dosage: 2 DOSAGE FORM (0.5 MG EACH)
  3. DEXAMETHASONE. [Concomitant]
     Active Substance: DEXAMETHASONE
     Indication: DYSPNOEA
     Dosage: 10 MILLIGRAM
     Route: 048
  4. METHYLPREDNISOLONE. [Concomitant]
     Active Substance: METHYLPREDNISOLONE
     Indication: PRODUCT USED FOR UNKNOWN INDICATION
     Dosage: 1 MILLIGRAM/KILOGRAM, Q.6H
     Route: 042
  5. LEVALBUTEROL [LEVOSALBUTAMOL] [Suspect]
     Active Substance: LEVALBUTEROL
     Dosage: 0.63 MG INHALED EVERY 2 HOUR WITH OCCASIONAL DOSES EVERY HOUR
  6. PREDNISOLONE. [Concomitant]
     Active Substance: PREDNISOLONE
     Indication: DYSPNOEA
     Dosage: 15 MILLIGRAM, QD
     Route: 048
  7. ALBUTEROL. [Suspect]
     Active Substance: ALBUTEROL
     Indication: DYSPNOEA
     Dosage: 10 MILLIGRAM, Q.H.
  8. LEVALBUTEROL [LEVOSALBUTAMOL] [Suspect]
     Active Substance: LEVALBUTEROL
     Indication: DYSPNOEA
     Dosage: 2 DOSAGE FORM (0.63 MG EACH)
  9. FLUTICASONE. [Concomitant]
     Active Substance: FLUTICASONE
     Indication: DYSPNOEA
     Dosage: 44 MICROGRAM, BID
  10. LEVALBUTEROL [LEVOSALBUTAMOL] [Suspect]
     Active Substance: LEVALBUTEROL
     Dosage: 1.25 MILLIGRAM, Q.H.
  11. BUDESONIDE. [Concomitant]
     Active Substance: BUDESONIDE
     Indication: DYSPNOEA
     Dosage: 1 DOSAGE FORM

REACTIONS (1)
  - Supraventricular tachycardia [Recovered/Resolved]
